FAERS Safety Report 9722472 (Version 1)
Quarter: 2013Q4

REPORT INFORMATION
  Report Type: Spontaneous
  Country: US (occurrence: US)
  Receive Date: 20131202
  Receipt Date: 20131202
  Transmission Date: 20140711
  Serious: No
  Sender: FDA-Public Use
  Company Number: US-009507513-1311USA011313

PATIENT
  Age: 14 Month
  Sex: Female
  Weight: 8.62 kg

DRUGS (2)
  1. CLARITIN ORAL SOLUTION [Suspect]
     Indication: SEASONAL ALLERGY
     Dosage: 2.5 ML, QD
     Route: 048
  2. CLARITIN ORAL SOLUTION [Suspect]
     Dosage: 3.75 ML, ONCE
     Route: 048
     Dates: start: 20131115

REACTIONS (2)
  - Drug administered to patient of inappropriate age [Unknown]
  - Off label use [Unknown]
